FAERS Safety Report 7637456-7 (Version None)
Quarter: 2011Q3

REPORT INFORMATION
  Report Type: 
  Country: None (occurrence: None)
  Receive Date: 20110726
  Receipt Date: 20110718
  Transmission Date: 20111222
  Serious: Yes (Other)
  Sender: FDA-Public Use
  Company Number: PHEH2010US03844

PATIENT
  Sex: Male

DRUGS (14)
  1. TRIMETHOPRIM [Concomitant]
  2. AMPICILLIN SODIUM [Concomitant]
     Route: 042
  3. KEFZOL [Concomitant]
     Route: 042
  4. MOMETASONE FUROATE [Concomitant]
  5. ZOMETA [Suspect]
     Route: 065
  6. ALBUTEROL SULFATE AUTOHALER [Concomitant]
     Route: 048
  7. CODEINE SULFATE [Concomitant]
  8. SULFAMETHOXAZOLE [Concomitant]
     Route: 048
  9. CHLORHEXIDINE GLUCONATE [Concomitant]
  10. MULTI-VITAMINS [Concomitant]
     Route: 048
  11. CLINDAMYCIN [Concomitant]
     Route: 042
  12. PENICILLIN VK [Concomitant]
     Route: 048
  13. TEMAZEPAM [Concomitant]
     Dosage: 30 MG, QD
     Route: 048
  14. OMEPRAZOLE [Concomitant]
     Dosage: 20 MG, BID
     Route: 048

REACTIONS (35)
  - PHYSICAL DISABILITY [None]
  - NEUROPATHY PERIPHERAL [None]
  - CONSTIPATION [None]
  - ACTINOMYCOSIS [None]
  - CARPAL TUNNEL SYNDROME [None]
  - HERPES SIMPLEX [None]
  - RIB FRACTURE [None]
  - SWELLING FACE [None]
  - HEADACHE [None]
  - DRY EYE [None]
  - PHARYNGITIS [None]
  - HYPOTHYROIDISM [None]
  - EAR PAIN [None]
  - EXPOSED BONE IN JAW [None]
  - DEFORMITY [None]
  - STRESS [None]
  - HEPATITIS C [None]
  - AMYLOIDOSIS [None]
  - INSOMNIA [None]
  - NECK PAIN [None]
  - HYPERSENSITIVITY [None]
  - MULTIPLE MYELOMA [None]
  - ANAEMIA [None]
  - INGUINAL HERNIA [None]
  - ARTHRALGIA [None]
  - VOMITING [None]
  - COUGH [None]
  - INFECTION [None]
  - INJURY [None]
  - BACK PAIN [None]
  - NAUSEA [None]
  - HYPERTENSION [None]
  - DEPRESSION [None]
  - OSTEONECROSIS OF JAW [None]
  - PAIN [None]
